FAERS Safety Report 9015177 (Version 1)
Quarter: 2013Q1

REPORT INFORMATION
  Report Type: Spontaneous
  Country: US (occurrence: US)
  Receive Date: 20130116
  Receipt Date: 20130116
  Transmission Date: 20140127
  Serious: Yes (Other)
  Sender: FDA-Public Use
  Company Number: US-009507513-1007USA03837

PATIENT
  Age: 7 Year
  Sex: Male
  Weight: 24.95 kg

DRUGS (2)
  1. SINGULAIR [Suspect]
     Indication: ASTHMA
     Dosage: 5 MG, QD
     Route: 048
     Dates: start: 20091106, end: 20091111
  2. SINGULAIR [Suspect]
     Indication: HYPERSENSITIVITY

REACTIONS (1)
  - Rash generalised [Unknown]
